FAERS Safety Report 5643119-X (Version None)
Quarter: 2008Q1

REPORT INFORMATION
  Report Type: 
  Country: None (occurrence: None)
  Receive Date: 20080227
  Receipt Date: 20080227
  Transmission Date: 20080703
  Serious: No
  Sender: FDA-Public Use
  Company Number: None

PATIENT
  Sex: Male
  Weight: 77.1115 kg

DRUGS (3)
  1. HUMIRA [Suspect]
     Dosage: 40 MG/0.8ML SC
     Route: 058
  2. REGLAN [Concomitant]
  3. ZOLOFT [Concomitant]

REACTIONS (2)
  - NERVOUS SYSTEM DISORDER [None]
  - TREMOR [None]
